FAERS Safety Report 5310418-0 (Version None)
Quarter: 2007Q2

REPORT INFORMATION
  Report Type: 
  Country: None (occurrence: None)
  Receive Date: 20070427
  Receipt Date: 20070416
  Transmission Date: 20071010
  Serious: Yes (Other)
  Sender: FDA-Public Use
  Company Number: US-PFIZER INC-2007031302

PATIENT
  Sex: Male
  Weight: 77.1 kg

DRUGS (6)
  1. CHANTIX [Suspect]
     Indication: SMOKING CESSATION THERAPY
     Dates: start: 20070405
  2. ALTACE [Concomitant]
  3. TOPROL-XL [Concomitant]
  4. METFORMIN HCL [Concomitant]
     Indication: DIABETES MELLITUS
  5. SIMVASTATIN [Concomitant]
     Indication: BLOOD CHOLESTEROL
  6. NOVOLOG [Concomitant]
     Indication: DIABETES MELLITUS

REACTIONS (1)
  - BLOOD GLUCOSE INCREASED [None]
